FAERS Safety Report 4938001-7 (Version None)
Quarter: 2006Q1

REPORT INFORMATION
  Report Type: 
  Country: None (occurrence: None)
  Receive Date: 20060309
  Receipt Date: 20050628
  Transmission Date: 20060701
  Serious: No
  Sender: FDA-Public Use
  Company Number: US-BRISTOL-MYERS SQUIBB COMPANY-13055462

PATIENT
  Age: 20 Year
  Sex: Female

DRUGS (2)
  1. MONISTAT-1 VAG OINT 6.5% [Suspect]
     Indication: VULVOVAGINAL MYCOTIC INFECTION
     Route: 067
     Dates: start: 20050627, end: 20050627
  2. CONTRACEPTIVE [Concomitant]
     Route: 048

REACTIONS (1)
  - VULVAL OEDEMA [None]
